FAERS Safety Report 9775685 (Version 2)
Quarter: 2014Q1

REPORT INFORMATION
  Report Type: Spontaneous
  Country: US (occurrence: US)
  Receive Date: 20131220
  Receipt Date: 20140211
  Transmission Date: 20141002
  Serious: No
  Sender: FDA-Public Use
  Company Number: US-PFIZER INC-2013363800

PATIENT
  Sex: Male

DRUGS (1)
  1. XELJANZ [Suspect]
     Dosage: UNK
     Dates: start: 20131213

REACTIONS (1)
  - Headache [Unknown]
